FAERS Safety Report 11396144 (Version 1)
Quarter: 2015Q3

REPORT INFORMATION
  Report Type: Spontaneous
  Country: US (occurrence: US)
  Receive Date: 20150819
  Receipt Date: 20150819
  Transmission Date: 20151125
  Serious: No
  Sender: FDA-Public Use
  Company Number: US-JNJFOC-911041395

PATIENT
  Sex: Female

DRUGS (2)
  1. NOT STATED [Concomitant]
  2. ORTHO-NOVUM 1/50 [Suspect]
     Active Substance: MESTRANOL\NORETHINDRONE
     Indication: CONTRACEPTION
     Route: 048
     Dates: start: 1963, end: 1972

REACTIONS (2)
  - Dysphonia [Unknown]
  - Hirsutism [Unknown]

NARRATIVE: CASE EVENT DATE: 19680101
